FAERS Safety Report 5357424-8 (Version None)
Quarter: 2007Q2

REPORT INFORMATION
  Report Type: 
  Country: None (occurrence: None)
  Receive Date: 20070530
  Receipt Date: 20061109
  Transmission Date: 20071010
  Serious: Yes (Hospitalization)
  Sender: FDA-Public Use
  Company Number: US200607002100

PATIENT
  Age: 32 Year
  Sex: Female
  Weight: 72.6 kg

DRUGS (4)
  1. ZYPREXA [Suspect]
     Indication: BIPOLAR DISORDER
     Dosage: 2.5 MG, DAILY (1/D)
     Dates: start: 20000101, end: 20020101
  2. QUETIAPINE FUMARATE [Concomitant]
  3. DEPAKOTE (VALPORATE SEMISODIUM) [Concomitant]
  4. LITHIUM CARBONATE [Concomitant]

REACTIONS (4)
  - OBESITY [None]
  - PANCREATITIS [None]
  - WEIGHT DECREASED [None]
  - WEIGHT INCREASED [None]
